FAERS Safety Report 9379329 (Version 1)
Quarter: 2013Q3

REPORT INFORMATION
  Report Type: Spontaneous
  Country: ES (occurrence: ES)
  Receive Date: 20130702
  Receipt Date: 20130702
  Transmission Date: 20140515
  Serious: Yes (Hospitalization)
  Sender: FDA-Public Use
  Company Number: ES-SANOFI-AVENTIS-2013SA064790

PATIENT
  Age: 81 Year
  Sex: Male

DRUGS (4)
  1. LANTUS [Suspect]
     Indication: TYPE 2 DIABETES MELLITUS
     Dosage: 0-0-12
     Route: 058
     Dates: start: 20121030, end: 20121118
  2. METFORMIN [Suspect]
     Indication: PRODUCT USED FOR UNKNOWN INDICATION
     Dosage: 1/2-1/2-1/2
     Route: 048
     Dates: start: 20121113, end: 20121118
  3. PNEUMOCOCCAL VACCINE [Suspect]
     Indication: PROPHYLAXIS
     Dosage: 1INY
     Route: 030
     Dates: start: 20121107, end: 20121107
  4. INFLUENZA VACCINE [Suspect]
     Indication: PROPHYLAXIS
     Dosage: 1INY
     Route: 030
     Dates: start: 20121107, end: 20121107

REACTIONS (2)
  - Drug eruption [Not Recovered/Not Resolved]
  - Acute myocardial infarction [Recovering/Resolving]
